FAERS Safety Report 7403868-X (Version None)
Quarter: 2011Q2

REPORT INFORMATION
  Report Type: 
  Country: None (occurrence: None)
  Receive Date: 20110408
  Receipt Date: 20110404
  Transmission Date: 20111010
  Serious: Yes (Disabling, Other)
  Sender: FDA-Public Use
  Company Number: FR-ABBOTT-11P-056-0703462-00

PATIENT
  Sex: Female

DRUGS (2)
  1. HUMIRA [Suspect]
  2. HUMIRA [Suspect]
     Indication: ANKYLOSING SPONDYLITIS
     Dates: start: 20101101, end: 20110104

REACTIONS (5)
  - ASTHENIA [None]
  - TRANSIENT ISCHAEMIC ATTACK [None]
  - ATAXIA [None]
  - APHASIA [None]
  - PSYCHOMOTOR SKILLS IMPAIRED [None]
